FAERS Safety Report 21119289 (Version 18)
Quarter: 2024Q2

REPORT INFORMATION
  Report Type: Spontaneous
  Country: US (occurrence: US)
  Receive Date: 20220722
  Receipt Date: 20240624
  Transmission Date: 20240716
  Serious: Yes (Hospitalization, Other)
  Sender: FDA-Public Use
  Company Number: US-GLAXOSMITHKLINE-US2022108656

PATIENT

DRUGS (16)
  1. ZEJULA [Suspect]
     Active Substance: NIRAPARIB
     Indication: Ovarian cancer
     Dosage: 300 MG, QD
     Dates: start: 20220625
  2. ZEJULA [Suspect]
     Active Substance: NIRAPARIB
     Dosage: 200 MG, QD
  3. ZEJULA [Suspect]
     Active Substance: NIRAPARIB
     Dosage: 200 MG, QD
     Route: 048
  4. ZEJULA [Suspect]
     Active Substance: NIRAPARIB
     Dosage: 200 MG, QD
     Route: 048
  5. ZEJULA [Suspect]
     Active Substance: NIRAPARIB
     Dosage: 200 MG, QD
  6. ZEJULA [Suspect]
     Active Substance: NIRAPARIB
     Dosage: 200 MG, QD
  7. ZEJULA [Suspect]
     Active Substance: NIRAPARIB
     Dosage: 200 MG, QD
     Route: 048
  8. ZEJULA [Suspect]
     Active Substance: NIRAPARIB
     Dosage: 200 MG, QD
     Route: 048
  9. ZEJULA [Suspect]
     Active Substance: NIRAPARIB
     Dosage: 200 MG, QD
  10. ZEJULA [Suspect]
     Active Substance: NIRAPARIB
     Dosage: 200 MG, QD
     Route: 048
     Dates: end: 20231008
  11. ZEJULA [Suspect]
     Active Substance: NIRAPARIB
     Indication: Ovarian cancer
     Dosage: 200 MG, QD
     Route: 048
     Dates: start: 20231009
  12. ZEJULA [Suspect]
     Active Substance: NIRAPARIB
     Dosage: 200 MG, QD
     Route: 048
  13. ZEJULA [Suspect]
     Active Substance: NIRAPARIB
     Dosage: 100 MG, QD
     Route: 048
  14. ZEJULA [Suspect]
     Active Substance: NIRAPARIB
     Dosage: 100 MG, QD
     Route: 048
  15. DILAUDID [Concomitant]
     Active Substance: HYDROMORPHONE HYDROCHLORIDE
     Indication: Product used for unknown indication
     Dosage: UNK
     Route: 042
  16. NORCO [Concomitant]
     Active Substance: ACETAMINOPHEN\HYDROCODONE BITARTRATE
     Indication: Product used for unknown indication
     Dosage: UNK

REACTIONS (43)
  - Hospitalisation [Unknown]
  - Surgery [Unknown]
  - Stent placement [Unknown]
  - Renal failure [Unknown]
  - Renal impairment [Unknown]
  - Lower respiratory tract infection [Unknown]
  - Heart rate increased [Not Recovered/Not Resolved]
  - Candida infection [Unknown]
  - Pain [Not Recovered/Not Resolved]
  - Illness [Recovered/Resolved]
  - Vomiting [Unknown]
  - Abdominal discomfort [Unknown]
  - Insomnia [Unknown]
  - Dysphagia [Not Recovered/Not Resolved]
  - Fatigue [Not Recovered/Not Resolved]
  - Blood pressure systolic increased [Recovered/Resolved]
  - Tongue discolouration [Not Recovered/Not Resolved]
  - Gingival discolouration [Unknown]
  - Oral mucosal discolouration [Unknown]
  - Red blood cell count abnormal [Unknown]
  - Vitamin B12 deficiency [Unknown]
  - Red blood cell count decreased [Unknown]
  - Blood alkaline phosphatase increased [Unknown]
  - Palliative care [Unknown]
  - Somnolence [Unknown]
  - Laboratory test abnormal [Unknown]
  - Constipation [Unknown]
  - Flatulence [Not Recovered/Not Resolved]
  - Pyrexia [Unknown]
  - Tremor [Unknown]
  - Oropharyngeal pain [Unknown]
  - Oral discomfort [Unknown]
  - Urinary tract infection [Unknown]
  - Weight decreased [Unknown]
  - Blood creatine increased [Unknown]
  - Hypertension [Not Recovered/Not Resolved]
  - Anxiety [Unknown]
  - Tachycardia [Unknown]
  - Protein urine present [Unknown]
  - Platelet count decreased [Not Recovered/Not Resolved]
  - Stomatitis [Unknown]
  - Dyspnoea [Unknown]
  - Product dose omission issue [Unknown]

NARRATIVE: CASE EVENT DATE: 20220804
